FAERS Safety Report 9558470 (Version 1)
Quarter: 2013Q3

REPORT INFORMATION
  Report Type: Spontaneous
  Country: US (occurrence: US)
  Receive Date: 20130926
  Receipt Date: 20130926
  Transmission Date: 20140515
  Serious: No
  Sender: FDA-Public Use
  Company Number: US-BIOGENIDEC-2013BI043922

PATIENT
  Age: 33 Year
  Sex: Female

DRUGS (2)
  1. TECFIDERA [Suspect]
     Indication: MULTIPLE SCLEROSIS
     Route: 048
     Dates: start: 20130509
  2. CARDIZEM [Concomitant]
     Indication: PREHYPERTENSION

REACTIONS (2)
  - Hypertension [Not Recovered/Not Resolved]
  - Pulse pressure increased [Not Recovered/Not Resolved]
